FAERS Safety Report 7750141-6 (Version None)
Quarter: 2011Q3

REPORT INFORMATION
  Report Type: 
  Country: None (occurrence: None)
  Receive Date: 20110912
  Receipt Date: 20110829
  Transmission Date: 20111222
  Serious: Yes (Hospitalization)
  Sender: FDA-Public Use
  Company Number: TCI2011A04192

PATIENT
  Age: 66 Year
  Sex: Male

DRUGS (11)
  1. LENDORM [Concomitant]
  2. ADALAT [Concomitant]
  3. SEREVENT [Concomitant]
  4. OLMESARTAN MEDOXOMIL [Concomitant]
  5. TAMSULOSIN HCL [Concomitant]
  6. ACTOS [Suspect]
     Indication: DIABETES MELLITUS
     Dosage: 15 MG (15 MG, 1 IN 1 D)
     Route: 048
     Dates: start: 20061002, end: 20070218
  7. METFORMIN HYDROCHLORIDE [Concomitant]
  8. SINGULAIR [Concomitant]
  9. BASEN (VOGLIBOSE) [Concomitant]
  10. ALVESCO [Concomitant]
  11. AMARYL [Concomitant]

REACTIONS (1)
  - BLADDER TRANSITIONAL CELL CARCINOMA STAGE I [None]
